FAERS Safety Report 11696525 (Version 1)
Quarter: 2015Q4

REPORT INFORMATION
  Report Type: Spontaneous
  Country: US (occurrence: US)
  Receive Date: 20151104
  Receipt Date: 20151104
  Transmission Date: 20160304
  Serious: No
  Sender: FDA-Public Use
  Company Number: US-NPS_PHARMACEUTICALS-002632

PATIENT
  Sex: Female

DRUGS (1)
  1. GATTEX [Suspect]
     Active Substance: TEDUGLUTIDE\WATER
     Indication: PRODUCT USED FOR UNKNOWN INDICATION
     Dosage: DF
     Route: 058

REACTIONS (2)
  - Stoma site pain [Unknown]
  - Bone pain [Unknown]

NARRATIVE: CASE EVENT DATE: 2015
